FAERS Safety Report 20743132 (Version 1)
Quarter: 2022Q2

REPORT INFORMATION
  Report Type: Spontaneous
  Country: BR (occurrence: BR)
  Receive Date: 20220425
  Receipt Date: 20220425
  Transmission Date: 20220721
  Serious: Yes (Hospitalization, Other)
  Sender: FDA-Public Use
  Company Number: BR-BRISTOL-MYERS SQUIBB COMPANY-2022-026359

PATIENT
  Sex: Female

DRUGS (2)
  1. OPDIVO [Suspect]
     Active Substance: NIVOLUMAB
     Indication: Non-small cell lung cancer
     Dosage: DOSE : UNAVAILABLE;     FREQ : UNAVAILABLE
  2. YERVOY [Suspect]
     Active Substance: IPILIMUMAB
     Indication: Non-small cell lung cancer

REACTIONS (1)
  - Neutropenia [Recovering/Resolving]
